FAERS Safety Report 8774294 (Version 3)
Quarter: 2013Q2

REPORT INFORMATION
  Report Type: Report from Study
  Country: JP (occurrence: JP)
  Receive Date: 20120907
  Receipt Date: 20130531
  Transmission Date: 20140414
  Serious: Yes (Hospitalization)
  Sender: FDA-Public Use
  Company Number: JP-009507513-1208JPN010305

PATIENT
  Age: 70 Year
  Sex: Male
  Weight: 90 kg

DRUGS (9)
  1. PEGINTRON [Suspect]
     Indication: CHRONIC HEPATITIS C
     Dosage: 1.5 MICROGRAM PER KILOGRAM, QW
     Route: 058
     Dates: start: 20120604, end: 20120712
  2. REBETOL [Suspect]
     Indication: CHRONIC HEPATITIS C
     Dosage: 800 MG, QD
     Route: 048
     Dates: start: 20120608, end: 20120712
  3. REBETOL [Suspect]
     Dosage: 600MG ,QD
     Route: 048
     Dates: start: 20120713, end: 20120719
  4. TELAVIC [Suspect]
     Indication: CHRONIC HEPATITIS C
     Dosage: 2250 MG, QD
     Route: 048
     Dates: start: 20120608, end: 20120712
  5. TELAVIC [Suspect]
     Dosage: 1000MG, QD
     Route: 048
     Dates: start: 20120713, end: 20120719
  6. ZYLORIC [Concomitant]
     Dosage: 100 MG, QD
     Route: 048
     Dates: start: 20120618
  7. RINDERON VG [Concomitant]
     Dosage: 5 G/DAY AS NEEDED
     Route: 061
     Dates: start: 20120622
  8. ALESION [Concomitant]
     Dosage: 20 MG, QD
     Route: 048
     Dates: start: 20120622
  9. MYSER (DIFLUPREDNATE) [Concomitant]
     Dosage: 5G/DAY AS NEEDED
     Route: 061
     Dates: start: 20120622

REACTIONS (2)
  - Anaemia [Not Recovered/Not Resolved]
  - Hypothyroidism [Recovering/Resolving]
